FAERS Safety Report 5613406-X (Version None)
Quarter: 2008Q1

REPORT INFORMATION
  Report Type: 
  Country: None (occurrence: None)
  Receive Date: 20080129
  Receipt Date: 20080109
  Transmission Date: 20080703
  Serious: Yes (Death)
  Sender: FDA-Public Use
  Company Number: 2008BM000002

PATIENT
  Age: 21 Year
  Sex: Male
  Weight: 64 kg

DRUGS (3)
  1. PREDNISONE [Suspect]
     Dosage: 60 MG;
  2. HEPARIN [Suspect]
     Dosage: 12000 U;OD;IV
     Route: 042
  3. ORAPRED            (PREDNISOLONE SODIUM PHOSPHATE (EXCEPT SYRUP) [Suspect]
     Dosage: 20.2MG PER 5ML;

REACTIONS (4)
  - DISSEMINATED INTRAVASCULAR COAGULATION [None]
  - PULMONARY ARTERY THROMBOSIS [None]
  - PULMONARY THROMBOSIS [None]
  - SHOCK [None]
